FAERS Safety Report 16329841 (Version 1)
Quarter: 2019Q2

REPORT INFORMATION
  Report Type: Spontaneous
  Country: ES (occurrence: ES)
  Receive Date: 20190520
  Receipt Date: 20190520
  Transmission Date: 20190711
  Serious: Yes (Hospitalization, Other)
  Sender: FDA-Public Use
  Company Number: ES-AUROBINDO-AUR-APL-2019-027926

PATIENT

DRUGS (4)
  1. TORASEMIDE [Suspect]
     Active Substance: TORSEMIDE
     Indication: OEDEMA PERIPHERAL
     Dosage: 5 MILLIGRAM, ONCE A DAY
     Route: 048
     Dates: start: 20131107, end: 20190107
  2. TORASEMIDE [Interacting]
     Active Substance: TORSEMIDE
     Dosage: 10 MILLIGRAM (10 MG DIA)
     Route: 048
     Dates: start: 20190108, end: 20190113
  3. ESCITALOPRAM 10 MG FILM-COATED TABLETS EFG [Interacting]
     Active Substance: ESCITALOPRAM OXALATE
     Indication: PRODUCT USED FOR UNKNOWN INDICATION
     Dosage: 10 MILLIGRAM, ONCE A DAY
     Route: 048
     Dates: start: 20150427
  4. ALDACTONE [Interacting]
     Active Substance: SPIRONOLACTONE
     Indication: AORTIC STENOSIS
     Dosage: 25 MILLIGRAM, ONCE A DAY (1-0-0)
     Route: 048
     Dates: start: 20180101

REACTIONS (1)
  - Inappropriate antidiuretic hormone secretion [Recovering/Resolving]

NARRATIVE: CASE EVENT DATE: 20190113
